FAERS Safety Report 9242972 (Version 2)
Quarter: 2013Q2

REPORT INFORMATION
  Report Type: Spontaneous
  Country: DE (occurrence: FR)
  Receive Date: 20130419
  Receipt Date: 20130429
  Transmission Date: 20140414
  Serious: Yes (Hospitalization)
  Sender: FDA-Public Use
  Company Number: FR-FRI-1000044493

PATIENT
  Age: 90 Year
  Sex: Female

DRUGS (5)
  1. MEMANTINE [Suspect]
     Indication: DEMENTIA ALZHEIMER^S TYPE
     Route: 048
     Dates: end: 20110923
  2. AMOXICILLIN [Suspect]
     Indication: ERYSIPELAS
     Route: 048
     Dates: start: 20110922, end: 20110923
  3. CLINDAMYCIN [Suspect]
     Indication: ERYSIPELAS
     Route: 042
     Dates: start: 20110924, end: 20110927
  4. FUROSEMIDE [Suspect]
     Indication: HYPERTENSION
     Route: 048
     Dates: end: 20110923
  5. DIFFU K [Suspect]
     Indication: HYPOKALAEMIA
     Route: 048
     Dates: end: 20110923

REACTIONS (2)
  - Rash maculo-papular [Recovered/Resolved]
  - Pruritus [Recovered/Resolved]
